FAERS Safety Report 12725047 (Version 6)
Quarter: 2017Q1

REPORT INFORMATION
  Report Type: Report from Study
  Country: US (occurrence: US)
  Receive Date: 20160908
  Receipt Date: 20170328
  Transmission Date: 20170428
  Serious: Yes (Hospitalization)
  Sender: FDA-Public Use
  Company Number: US-ACTELION-A-US2016-141582

PATIENT
  Age: 9 Month
  Sex: Male

DRUGS (19)
  1. ALBUTEROL. [Concomitant]
     Active Substance: ALBUTEROL
     Dosage: 0.63 MG/3 ML NEB, Q4HRS
  2. SILDENAFIL. [Concomitant]
     Active Substance: SILDENAFIL
  3. ALDACTONE [Concomitant]
     Active Substance: SPIRONOLACTONE
     Dosage: 7 MG, BID
     Dates: start: 20160427
  4. PULMICORT TURBUHALER [Concomitant]
     Active Substance: BUDESONIDE
     Dosage: 25 MG, BID
     Route: 045
     Dates: start: 201601
  5. TRACLEER [Suspect]
     Active Substance: BOSENTAN
     Dosage: 12.5 MG, BID
     Route: 048
  6. FUROSEMIDE. [Concomitant]
     Active Substance: FUROSEMIDE
     Dosage: 7.5 MG, BID
     Dates: start: 201603
  7. TADALAFIL [Concomitant]
     Active Substance: TADALAFIL
     Dosage: 5 MG, BID
     Dates: start: 201607
  8. SODIUM CHLORIDE. [Concomitant]
     Active Substance: SODIUM CHLORIDE
     Dosage: 1.125 ML, TID
  9. HYDROXYCHLOROQUINE [Concomitant]
     Active Substance: HYDROXYCHLOROQUINE
     Dosage: 15 MG, BID
  10. ACETAMINOPHEN. [Concomitant]
     Active Substance: ACETAMINOPHEN
     Dosage: 1.8 ML, Q4HRS
  11. BUDESONIDE. [Concomitant]
     Active Substance: BUDESONIDE
     Dosage: 2 ML, BID
  12. HYDROXYCHLOROQUINE [Concomitant]
     Active Substance: HYDROXYCHLOROQUINE
     Dosage: 20 MG, BID
  13. LANSOPRAZOLE. [Concomitant]
     Active Substance: LANSOPRAZOLE
     Dosage: 7.5 MG, BID
     Dates: start: 201602
  14. MULTIVITAMIN [Concomitant]
     Active Substance: VITAMINS
  15. PLAQUENIL [Concomitant]
     Active Substance: HYDROXYCHLOROQUINE SULFATE
     Dosage: 0.6 ML, BID
  16. AZITHROMYCIN ANHYDROUS. [Concomitant]
     Active Substance: AZITHROMYCIN ANHYDROUS
     Dosage: 1.3 MG, MON, WED, FRI
  17. CHLOROTHIAZIDE. [Concomitant]
     Active Substance: CHLOROTHIAZIDE
     Dosage: 0.8 ML, BID
  18. NACL [Concomitant]
     Active Substance: SODIUM CHLORIDE
     Dosage: 1 MEQ/KG, UNK
     Dates: start: 201609
  19. TRACLEER [Suspect]
     Active Substance: BOSENTAN
     Indication: PULMONARY HYPERTENSION
     Dosage: 15.625 MG, BID
     Route: 048
     Dates: start: 20160713

REACTIONS (12)
  - Diarrhoea [Recovered/Resolved]
  - Poor feeding infant [Unknown]
  - Hypoxia [Recovering/Resolving]
  - Nausea [Recovered/Resolved]
  - Cough [Unknown]
  - Irritability [Unknown]
  - Respiratory distress [Recovering/Resolving]
  - Viral infection [Recovered/Resolved]
  - Pulmonary arterial hypertension [Recovering/Resolving]
  - Aspiration [Unknown]
  - Condition aggravated [Recovering/Resolving]
  - Dehydration [Recovered/Resolved]

NARRATIVE: CASE EVENT DATE: 20160822
